FAERS Safety Report 5078608-2 (Version None)
Quarter: 2006Q3

REPORT INFORMATION
  Report Type: 
  Country: None (occurrence: None)
  Receive Date: 20060808
  Receipt Date: 20060803
  Transmission Date: 20061208
  Serious: No
  Sender: FDA-Public Use
  Company Number: E2090-00053-SPO-GB

PATIENT
  Age: 39 Year
  Sex: Male

DRUGS (5)
  1. ZONEGRAN [Suspect]
     Dosage: 400 MG, 2 IN 1 D, ORAL
     Route: 048
  2. OLANZAPINE [Concomitant]
  3. CLONAZEPAM [Concomitant]
  4. VALPROATE SODIUM [Concomitant]
  5. PREGABALIN [Concomitant]

REACTIONS (4)
  - ABNORMAL BEHAVIOUR [None]
  - AGGRESSION [None]
  - AGITATION [None]
  - IMPULSIVE BEHAVIOUR [None]
